FAERS Safety Report 5451055-7 (Version None)
Quarter: 2007Q3

REPORT INFORMATION
  Report Type: 
  Country: None (occurrence: None)
  Receive Date: 20070801
  Receipt Date: 20070615
  Transmission Date: 20080115
  Serious: Yes (Hospitalization)
  Sender: FDA-Public Use
  Company Number: US-JNJFOC-20070506542

PATIENT
  Age: 5 Year
  Sex: Female
  Weight: 21.0923 kg

DRUGS (4)
  1. CHILDREN'S MOTRIN [Suspect]
     Indication: PYREXIA
     Dosage: ORAL, 150 MG, ORAL
     Route: 048
     Dates: start: 20050501
  2. SEPTRA [Suspect]
     Indication: URINARY TRACT INFECTION
     Dates: start: 20050517
  3. TANNATE-V-DM (COUGH AND COLD PEPARATION) SUSPENSION [Concomitant]
  4. ACETAMINOPHEN [Concomitant]

REACTIONS (1)
  - STEVENS-JOHNSON SYNDROME [None]
